FAERS Safety Report 7773062-1 (Version None)
Quarter: 2011Q3

REPORT INFORMATION
  Report Type: 
  Country: None (occurrence: None)
  Receive Date: 20110921
  Receipt Date: 20110921
  Transmission Date: 20111222
  Serious: No
  Sender: FDA-Public Use
  Company Number: None

PATIENT
  Age: 82 Year
  Sex: Male
  Weight: 89.9 kg

DRUGS (2)
  1. DAPTOMYCIN [Suspect]
     Indication: INFECTION
     Dosage: 750 MG EVERY DAY IV
     Route: 042
     Dates: start: 20110629, end: 20110711
  2. SIMVASTATIN [Suspect]
     Indication: HYPERLIPIDAEMIA
     Dosage: 20 MG EVERY DAY PO
     Route: 048
     Dates: start: 20110621, end: 20110711

REACTIONS (1)
  - RHABDOMYOLYSIS [None]
